FAERS Safety Report 5346671-7 (Version None)
Quarter: 2007Q2

REPORT INFORMATION
  Report Type: 
  Country: None (occurrence: None)
  Receive Date: 20070605
  Receipt Date: 20070524
  Transmission Date: 20071010
  Serious: Yes (Hospitalization)
  Sender: FDA-Public Use
  Company Number: IT-PFIZER INC-2007042303

PATIENT
  Sex: Female

DRUGS (3)
  1. AROMASIN [Suspect]
     Indication: BREAST CANCER
     Route: 048
     Dates: start: 20060901, end: 20070201
  2. PLENTY [Concomitant]
  3. CONCOR [Concomitant]

REACTIONS (2)
  - ANAEMIA [None]
  - BONE MARROW FAILURE [None]
